FAERS Safety Report 13747533 (Version 1)
Quarter: 2017Q3

REPORT INFORMATION
  Report Type: Report from Study
  Country: None (occurrence: AU)
  Receive Date: 20170712
  Receipt Date: 20170712
  Transmission Date: 20171127
  Serious: Yes (Other)
  Sender: FDA-Public Use
  Company Number: AU-ABBVIE-17P-008-2024391-00

PATIENT
  Sex: Female

DRUGS (3)
  1. RIBAVIRIN. [Suspect]
     Active Substance: RIBAVIRIN
     Indication: EXPOSURE VIA BODY FLUID
     Route: 050
  2. OMBITASVIR/PARITAPREVIR/RITONAVIR [Suspect]
     Active Substance: OMBITASVIR\PARITAPREVIR\RITONAVIR
     Indication: EXPOSURE VIA BODY FLUID
     Route: 050
  3. DASABUVIR [Suspect]
     Active Substance: DASABUVIR
     Indication: EXPOSURE VIA BODY FLUID
     Route: 050

REACTIONS (3)
  - Exposure during pregnancy [Unknown]
  - Abortion spontaneous [Unknown]
  - Paternal drugs affecting foetus [Unknown]

NARRATIVE: CASE EVENT DATE: 2017
